FAERS Safety Report 4933868-0 (Version None)
Quarter: 2006Q1

REPORT INFORMATION
  Report Type: 
  Country: None (occurrence: None)
  Receive Date: 20060306
  Receipt Date: 20051223
  Transmission Date: 20060701
  Serious: Yes (Death, Other)
  Sender: FDA-Public Use
  Company Number: US-MERCK-0512USA03784

PATIENT
  Age: 55 Year
  Sex: Male
  Weight: 95 kg

DRUGS (4)
  1. VIOXX [Suspect]
     Indication: RHEUMATOID ARTHRITIS
     Route: 048
     Dates: start: 19990401, end: 19991001
  2. VIOXX [Suspect]
     Route: 048
     Dates: start: 19990401, end: 19991001
  3. VIOXX [Suspect]
     Route: 048
     Dates: start: 19990401, end: 19991001
  4. VIOXX [Suspect]
     Route: 048
     Dates: start: 19990401, end: 19991001

REACTIONS (4)
  - DEATH [None]
  - MYOCARDIAL INFARCTION [None]
  - PRESCRIBED OVERDOSE [None]
  - RENAL FAILURE [None]
